FAERS Safety Report 24793046 (Version 2)
Quarter: 2025Q1

REPORT INFORMATION
  Report Type: Spontaneous
  Country: DE (occurrence: DE)
  Receive Date: 20241231
  Receipt Date: 20250113
  Transmission Date: 20250409
  Serious: Yes (Hospitalization, Other)
  Sender: AUROBINDO
  Company Number: DE-009507513-2412DEU004925

PATIENT
  Sex: Female
  Weight: 61 kg

DRUGS (7)
  1. CARBOPLATIN [Suspect]
     Active Substance: CARBOPLATIN
     Indication: Non-small cell lung cancer
     Route: 065
     Dates: start: 20240313, end: 20240515
  2. CARBOPLATIN [Suspect]
     Active Substance: CARBOPLATIN
     Route: 065
     Dates: start: 20240515, end: 20240515
  3. PEMETREXED [Suspect]
     Active Substance: PEMETREXED
     Indication: Non-small cell lung cancer
     Route: 065
     Dates: start: 20240313, end: 20240515
  4. PEMETREXED [Suspect]
     Active Substance: PEMETREXED
     Route: 065
     Dates: start: 20240515, end: 20240515
  5. PEMBROLIZUMAB [Suspect]
     Active Substance: PEMBROLIZUMAB
     Indication: Non-small cell lung cancer
     Route: 065
  6. PEMBROLIZUMAB [Suspect]
     Active Substance: PEMBROLIZUMAB
     Route: 065
     Dates: start: 20240313, end: 20240515
  7. PREDNISOLONE [Concomitant]
     Active Substance: PREDNISOLONE
     Indication: Product used for unknown indication
     Dosage: 50 MILLIGRAM, ONCE A DAY
     Route: 048
     Dates: start: 20240606

REACTIONS (2)
  - Colitis [Recovering/Resolving]
  - Haemorrhage [Recovering/Resolving]

NARRATIVE: CASE EVENT DATE: 20240612
